FAERS Safety Report 16664965 (Version 1)
Quarter: 2019Q3

REPORT INFORMATION
  Report Type: Spontaneous
  Country: US (occurrence: US)
  Receive Date: 20190803
  Receipt Date: 20190803
  Transmission Date: 20191004
  Serious: No
  Sender: FDA-Public Use
  Company Number: US-009507513-1907USA006619

PATIENT
  Age: 68 Year
  Sex: Male

DRUGS (5)
  1. CABERGOLINE. [Concomitant]
     Active Substance: CABERGOLINE
     Dosage: 1.5 MILLIGRAM, QD
  2. JANUVIA [Suspect]
     Active Substance: SITAGLIPTIN PHOSPHATE
     Indication: HYPERGLYCAEMIA
     Dosage: 100 MILLIGRAM, QD
     Route: 048
  3. EVEROLIMUS. [Concomitant]
     Active Substance: EVEROLIMUS
     Indication: PROLACTIN-PRODUCING PITUITARY TUMOUR
     Dosage: 10 MILLIGRAM, QD
  4. CABERGOLINE. [Concomitant]
     Active Substance: CABERGOLINE
     Indication: PROLACTIN-PRODUCING PITUITARY TUMOUR
     Dosage: DOSE: 0.75 MILLIGRAM, BIW
  5. CABERGOLINE. [Concomitant]
     Active Substance: CABERGOLINE
     Dosage: DOSE: 0.75 MILLIGRAM, QD

REACTIONS (1)
  - Product use in unapproved indication [Unknown]
